FAERS Safety Report 5364762-1 (Version None)
Quarter: 2007Q2

REPORT INFORMATION
  Report Type: 
  Country: None (occurrence: None)
  Receive Date: 20070530
  Receipt Date: 20070322
  Transmission Date: 20071010
  Serious: No
  Sender: FDA-Public Use
  Company Number: 2006PV010008

PATIENT
  Age: 71 Year
  Sex: Female
  Weight: 110.6777 kg

DRUGS (12)
  1. BYETTA [Suspect]
     Indication: DIABETES MELLITUS NON-INSULIN-DEPENDENT
     Dosage: SEE IMAGE
     Route: 058
     Dates: start: 20060305
  2. BYETTA [Suspect]
  3. BYETTA [Suspect]
  4. OLIVE LEAF SUPPLEMENT [Suspect]
     Indication: DRUG USE FOR UNKNOWN INDICATION
  5. LANTUS [Concomitant]
  6. GLIPIZIDE [Concomitant]
  7. GLUCOTROL [Concomitant]
  8. AVANDIA [Concomitant]
  9. ATENOLOL [Concomitant]
  10. COZAAR [Concomitant]
  11. LASIX [Concomitant]
  12. IMDUR [Concomitant]

REACTIONS (12)
  - ABDOMINAL DISTENSION [None]
  - BLOOD GLUCOSE DECREASED [None]
  - BLOOD GLUCOSE INCREASED [None]
  - DRUG EFFECT DECREASED [None]
  - DYSPEPSIA [None]
  - ERUCTATION [None]
  - FLATULENCE [None]
  - INJECTION SITE ERYTHEMA [None]
  - INJECTION SITE PRURITUS [None]
  - INJECTION SITE SWELLING [None]
  - VOMITING [None]
  - WEIGHT DECREASED [None]
